FAERS Safety Report 26165260 (Version 1)
Quarter: 2025Q4

REPORT INFORMATION
  Report Type: Spontaneous
  Country: AU (occurrence: AU)
  Receive Date: 20251216
  Receipt Date: 20251216
  Transmission Date: 20260118
  Serious: Yes (Death, Hospitalization)
  Sender: AMGEN
  Company Number: AU-AMGEN-AUSSP2025245980

PATIENT

DRUGS (1)
  1. EVOLOCUMAB [Suspect]
     Active Substance: EVOLOCUMAB
     Indication: Lipids abnormal
     Dosage: 420 MILLIGRAM, Q4WK, (12 WEEKS)
     Route: 058

REACTIONS (2)
  - Hormone-refractory prostate cancer [Fatal]
  - Adverse event [Unknown]
